FAERS Safety Report 7608718-4 (Version None)
Quarter: 2011Q3

REPORT INFORMATION
  Report Type: 
  Country: None (occurrence: None)
  Receive Date: 20110714
  Receipt Date: 20110706
  Transmission Date: 20111222
  Serious: Yes (Hospitalization)
  Sender: FDA-Public Use
  Company Number: US-GENZYME-POMP-1001631

PATIENT
  Sex: Male
  Weight: 22.8 kg

DRUGS (22)
  1. POTASSIUM CHLORIDE [Concomitant]
     Indication: SUPPLEMENTATION THERAPY
     Dosage: 10 MEQ, TID
     Route: 065
  2. TOBI [Concomitant]
     Indication: BRONCHIAL HYPERREACTIVITY
     Dosage: 5 ML, BID
     Route: 055
  3. PULMICORT [Concomitant]
     Indication: BRONCHIAL HYPERREACTIVITY
     Dosage: 0.5 MG, TID
     Route: 055
  4. IBUPROFEN [Concomitant]
     Indication: PAIN
     Dosage: 10 ML, Q6HR
     Route: 050
  5. CALCIUM CARBONATE [Concomitant]
     Indication: SUPPLEMENTATION THERAPY
     Dosage: 625 MG, BID
     Route: 050
  6. HYDROCORTISONE [Concomitant]
     Indication: PREMEDICATION
     Dosage: 40 MG, Q2W
     Route: 042
  7. CARVEDILOL [Concomitant]
     Indication: CARDIOMYOPATHY
     Dosage: 3.125 MG, BID
     Route: 050
  8. NYSTATIN [Concomitant]
     Dosage: UNK
     Route: 061
  9. ERGOCALCIFEROL [Concomitant]
     Indication: SUPPLEMENTATION THERAPY
     Dosage: 1200 U, QD
     Route: 065
  10. MYOZYME [Suspect]
     Indication: GLYCOGEN STORAGE DISEASE TYPE II
     Dosage: 40 MG/KG, Q2W
     Route: 042
     Dates: start: 20071130
  11. GLYCOPYRROLATE [Concomitant]
     Indication: GASTROOESOPHAGEAL REFLUX DISEASE
     Dosage: 0.8 MG, QID
     Route: 065
  12. SODIUM CHLORIDE [Concomitant]
     Indication: SUPPLEMENTATION THERAPY
     Dosage: 20 MEQ, QID
     Route: 065
  13. DIPHENHYDRAMINE HCL [Concomitant]
     Indication: PREMEDICATION
     Dosage: 20 MG, Q2W
     Route: 042
  14. ENALAPRIL MALEATE [Concomitant]
     Indication: CARDIOMYOPATHY
     Dosage: 2.5 MG, BID
     Route: 050
  15. RANITIDINE [Concomitant]
     Indication: PREMEDICATION
     Dosage: 20 MG, Q2W
     Route: 042
  16. LANSOPRAZOLE [Concomitant]
     Indication: GASTROOESOPHAGEAL REFLUX DISEASE
     Dosage: 15 MG, BID
     Route: 050
  17. ZYRTEC [Concomitant]
     Indication: HYPERSENSITIVITY
     Dosage: 5 MG, QD
     Route: 065
  18. IBUPROFEN [Concomitant]
     Indication: PYREXIA
  19. VITAMIN D [Concomitant]
     Indication: SUPPLEMENTATION THERAPY
     Dosage: 400 U, TID
     Route: 050
  20. CETIRIZINE HCL [Concomitant]
     Indication: PREMEDICATION
     Dosage: 5 MG, Q2W
     Route: 050
  21. ALBUTEROL SULFATE AUTOHALER [Concomitant]
     Indication: BRONCHIAL HYPERREACTIVITY
     Dosage: 2.5 MG, QID
     Route: 055
  22. PREDNISOLONE [Concomitant]
     Indication: PREMEDICATION
     Dosage: 30 MG, Q2W
     Route: 050

REACTIONS (2)
  - LOBAR PNEUMONIA [None]
  - TRACHEOBRONCHITIS [None]
